FAERS Safety Report 16175805 (Version 1)
Quarter: 2019Q2

REPORT INFORMATION
  Report Type: Spontaneous
  Country: US (occurrence: US)
  Receive Date: 20190409
  Receipt Date: 20190409
  Transmission Date: 20190711
  Serious: No
  Sender: FDA-Public Use
  Company Number: US-PFIZER INC-2019136272

PATIENT
  Age: 55 Year
  Sex: Male

DRUGS (1)
  1. IBRANCE [Suspect]
     Active Substance: PALBOCICLIB
     Indication: INTRADUCTAL PROLIFERATIVE BREAST LESION
     Dosage: 125 MG, CYCLIC (DAILY WITH FOOD FOR 21 DAYS ON THEN 7 DAYS OFF)
     Route: 048
     Dates: start: 201903

REACTIONS (3)
  - Product use issue [Unknown]
  - Constipation [Unknown]
  - Epistaxis [Unknown]

NARRATIVE: CASE EVENT DATE: 2019
